FAERS Safety Report 16831384 (Version 1)
Quarter: 2019Q3

REPORT INFORMATION
  Report Type: Spontaneous
  Country: FR (occurrence: FR)
  Receive Date: 20190920
  Receipt Date: 20190920
  Transmission Date: 20191005
  Serious: Yes (Hospitalization)
  Sender: FDA-Public Use
  Company Number: FR-ZYDUS-040676

PATIENT
  Age: 79 Year
  Sex: Male
  Weight: 85 kg

DRUGS (6)
  1. BISOPROLOL FUMARATE. [Suspect]
     Active Substance: BISOPROLOL FUMARATE
     Indication: INFARCTION
     Route: 048
     Dates: start: 20190719, end: 20190727
  2. BRILIQUE [Concomitant]
     Active Substance: TICAGRELOR
     Indication: INFARCTION
     Route: 048
     Dates: start: 20190719
  3. ATORVASTATIN [Suspect]
     Active Substance: ATORVASTATIN
     Indication: INFARCTION
     Route: 048
     Dates: start: 20190719, end: 20190727
  4. LANSOPRAZOLE. [Concomitant]
     Active Substance: LANSOPRAZOLE
     Indication: INFARCTION
     Route: 048
     Dates: start: 20190719
  5. ACETYLSALICYLATE LYSINE/ACETYLSALICYLIC ACID [Concomitant]
     Indication: MYOCARDIAL ISCHAEMIA
     Route: 048
  6. RAMIPRIL. [Concomitant]
     Active Substance: RAMIPRIL
     Indication: INFARCTION
     Route: 048
     Dates: start: 20190719, end: 20190728

REACTIONS (1)
  - Organising pneumonia [Recovering/Resolving]

NARRATIVE: CASE EVENT DATE: 20190724
